FAERS Safety Report 14678972 (Version 2)
Quarter: 2018Q2

REPORT INFORMATION
  Report Type: Report from Study
  Country: CA (occurrence: CA)
  Receive Date: 20180326
  Receipt Date: 20180417
  Transmission Date: 20180711
  Serious: Yes (Death, Hospitalization, Other)
  Sender: FDA-Public Use
  Company Number: PHHY2017CA009858

PATIENT
  Age: 74 Year
  Sex: Male

DRUGS (10)
  1. XOLAIR [Suspect]
     Active Substance: OMALIZUMAB
     Dosage: UNK
     Route: 058
     Dates: start: 20171130
  2. XOLAIR [Suspect]
     Active Substance: OMALIZUMAB
     Dosage: UNK
     Route: 058
     Dates: start: 20171222
  3. XOLAIR [Suspect]
     Active Substance: OMALIZUMAB
     Dosage: 150 MG, EVERY 4 WEEKS
     Route: 058
     Dates: start: 20180216, end: 20180216
  4. XAREL [Concomitant]
     Indication: ANTICOAGULANT THERAPY
     Dosage: 1 DF, QD
     Route: 048
     Dates: start: 201611
  5. XOLAIR [Suspect]
     Active Substance: OMALIZUMAB
     Dosage: UNK
     Route: 058
     Dates: start: 20170217
  6. XOLAIR [Suspect]
     Active Substance: OMALIZUMAB
     Dosage: UNK
     Route: 058
     Dates: start: 20170901
  7. XOLAIR [Suspect]
     Active Substance: OMALIZUMAB
     Indication: ASTHMA
     Dosage: 150 MG, EVERY 4 WEEKS
     Route: 058
     Dates: start: 20170118
  8. XOLAIR [Suspect]
     Active Substance: OMALIZUMAB
     Dosage: UNK
     Route: 058
     Dates: start: 20170609
  9. XOLAIR [Suspect]
     Active Substance: OMALIZUMAB
     Dosage: UNK
     Route: 058
     Dates: start: 20170804
  10. AZITHROMYCIN SANDOZ [Suspect]
     Active Substance: AZITHROMYCIN ANHYDROUS
     Indication: LUNG NEOPLASM MALIGNANT
     Dosage: 1 DF, QD
     Route: 048
     Dates: start: 201611

REACTIONS (15)
  - Death [Fatal]
  - Abdominal pain upper [Unknown]
  - Asthma [Unknown]
  - Heart rate increased [Recovered/Resolved]
  - Product use in unapproved indication [Unknown]
  - Forced expiratory volume decreased [Unknown]
  - Blood pressure increased [Unknown]
  - Oxygen saturation decreased [Unknown]
  - Forced vital capacity decreased [Unknown]
  - Dyspnoea [Unknown]
  - Influenza [Unknown]
  - Obstructive airways disorder [Unknown]
  - Inappropriate schedule of drug administration [Unknown]
  - Decreased appetite [Unknown]
  - Malaise [Unknown]

NARRATIVE: CASE EVENT DATE: 201611
